FAERS Safety Report 11411924 (Version 2)
Quarter: 2015Q3

REPORT INFORMATION
  Report Type: Report from Study
  Country: BR (occurrence: BR)
  Receive Date: 20150824
  Receipt Date: 20150827
  Transmission Date: 20151125
  Serious: Yes (Death, Other)
  Sender: FDA-Public Use
  Company Number: PHHY2015BR101772

PATIENT
  Age: 49 Year
  Sex: Male
  Weight: 65 kg

DRUGS (1)
  1. EXELON PATCH [Suspect]
     Active Substance: RIVASTIGMINE
     Indication: DEMENTIA
     Dosage: PATCH (10 CM 2)
     Route: 062
     Dates: start: 201406, end: 201407

REACTIONS (4)
  - Apathy [Recovered/Resolved]
  - Malaise [Recovered/Resolved]
  - Pneumonia [Fatal]
  - Depressed mood [Recovered/Resolved]

NARRATIVE: CASE EVENT DATE: 201406
